FAERS Safety Report 14774204 (Version 1)
Quarter: 2018Q2

REPORT INFORMATION
  Report Type: Spontaneous
  Country: US (occurrence: US)
  Receive Date: 20180418
  Receipt Date: 20180418
  Transmission Date: 20180711
  Serious: Yes (Hospitalization, Other)
  Sender: FDA-Public Use
  Company Number: US-SA-2018SA108903

PATIENT
  Age: 59 Year
  Sex: Female
  Weight: 46.72 kg

DRUGS (24)
  1. ARISTOCORT [Concomitant]
     Active Substance: TRIAMCINOLONE DIACETATE
  2. SOLU-CORTEF [Concomitant]
     Active Substance: HYDROCORTISONE SODIUM SUCCINATE
  3. FLAGYL [Concomitant]
     Active Substance: METRONIDAZOLE\METRONIDAZOLE HYDROCHLORIDE
  4. LOVENOX [Suspect]
     Active Substance: ENOXAPARIN SODIUM
     Route: 058
     Dates: end: 2016
  5. LOVENOX [Suspect]
     Active Substance: ENOXAPARIN SODIUM
     Route: 058
     Dates: end: 2017
  6. MAGNESIUM [Concomitant]
     Active Substance: MAGNESIUM
  7. FOLIC ACID. [Concomitant]
     Active Substance: FOLIC ACID
  8. LOMOTIL [Concomitant]
     Active Substance: ATROPINE SULFATE\DIPHENOXYLATE HYDROCHLORIDE
  9. NORTRIPTYLINE [Concomitant]
     Active Substance: NORTRIPTYLINE
  10. OPIUM TINCTURE [Concomitant]
     Active Substance: MORPHINE
  11. GUAR GUM [Concomitant]
     Active Substance: GUAR GUM
  12. IMMUNOGLOBULIN HUMAN NORMAL [Concomitant]
     Active Substance: HUMAN IMMUNOGLOBULIN G
  13. BONIVA [Concomitant]
     Active Substance: IBANDRONATE SODIUM
  14. PSYLLIUM [Concomitant]
     Active Substance: PLANTAGO SEED
  15. BEANO [Concomitant]
     Active Substance: ASPERGILLUS NIGER .ALPHA.-GALACTOSIDASE
  16. ALBUTEROL. [Concomitant]
     Active Substance: ALBUTEROL
  17. CALCIUM [Concomitant]
     Active Substance: CALCIUM
  18. EFFEXOR [Concomitant]
     Active Substance: VENLAFAXINE HYDROCHLORIDE
  19. SIMETHICONE (DIMETHICONE) [Concomitant]
     Active Substance: DIMETHICONE
  20. VITAMIN B12 [Concomitant]
     Active Substance: CYANOCOBALAMIN
  21. IMITREX [Concomitant]
     Active Substance: SUMATRIPTAN SUCCINATE
  22. HUMIRA [Suspect]
     Active Substance: ADALIMUMAB
     Route: 058
     Dates: start: 20150702, end: 20170513
  23. ATIVAN [Concomitant]
     Active Substance: LORAZEPAM
  24. DULERA [Concomitant]
     Active Substance: FORMOTEROL FUMARATE DIHYDRATE\MOMETASONE FUROATE

REACTIONS (23)
  - Wound dehiscence [Not Recovered/Not Resolved]
  - Dry skin [Not Recovered/Not Resolved]
  - Malignant polyp [Recovered/Resolved]
  - Skin disorder [Unknown]
  - Erythema [Not Recovered/Not Resolved]
  - Abdominal adhesions [Recovered/Resolved]
  - Injection site haematoma [Recovered/Resolved]
  - Blood pressure decreased [Recovered/Resolved]
  - Dehydration [Not Recovered/Not Resolved]
  - Hypomagnesaemia [Not Recovered/Not Resolved]
  - Stomal hernia [Unknown]
  - Gastrointestinal hypermotility [Not Recovered/Not Resolved]
  - Thrombosis [Not Recovered/Not Resolved]
  - Enteritis [Recovered/Resolved]
  - Wound secretion [Not Recovered/Not Resolved]
  - Stoma site oedema [Not Recovered/Not Resolved]
  - Procedural haemorrhage [Not Recovered/Not Resolved]
  - Dehydration [Recovered/Resolved]
  - Expired product administered [Unknown]
  - Hypokalaemia [Not Recovered/Not Resolved]
  - Dyspnoea [Unknown]
  - Rash [Not Recovered/Not Resolved]
  - Gastroenterostomy [Not Recovered/Not Resolved]

NARRATIVE: CASE EVENT DATE: 201601
